FAERS Safety Report 5383884-2 (Version None)
Quarter: 2007Q3

REPORT INFORMATION
  Report Type: 
  Country: None (occurrence: None)
  Receive Date: 20070711
  Receipt Date: 20070702
  Transmission Date: 20080115
  Serious: Yes (Other)
  Sender: FDA-Public Use
  Company Number: US-NOVOPROD-265135

PATIENT
  Age: 8 Year
  Sex: Female
  Weight: 201 kg

DRUGS (3)
  1. NORDITROPIN [Suspect]
     Indication: GROWTH HORMONE DEFICIENCY
     Dosage: .3 MG/KG, QW
  2. NORDITROPIN [Suspect]
     Dosage: .15 MG/KG, QW ( FOR 1 MONTH AFTER REINTRODUCING)
  3. NORDITROPIN [Suspect]
     Dosage: .3 UNK, UNK

REACTIONS (1)
  - THYMUS ENLARGEMENT [None]
